FAERS Safety Report 13057465 (Version 2)
Quarter: 2017Q1

REPORT INFORMATION
  Report Type: Spontaneous
  Country: IT (occurrence: IT)
  Receive Date: 20161223
  Receipt Date: 20170103
  Transmission Date: 20170428
  Serious: Yes (Other)
  Sender: FDA-Public Use
  Company Number: IT-AMGEN-ITASP2016179466

PATIENT
  Age: 58 Year
  Sex: Female
  Weight: 70 kg

DRUGS (3)
  1. PANITUMUMAB [Suspect]
     Active Substance: PANITUMUMAB
     Dosage: 420 MG, CYCLICAL
     Route: 041
     Dates: start: 2016, end: 201610
  2. PANITUMUMAB [Suspect]
     Active Substance: PANITUMUMAB
     Dosage: 336 MG, CYCLICAL
     Route: 065
     Dates: start: 20161024
  3. PANITUMUMAB [Suspect]
     Active Substance: PANITUMUMAB
     Indication: ADENOCARCINOMA OF COLON
     Dosage: 420 MG, CYCLICAL
     Route: 042
     Dates: start: 20160707, end: 2016

REACTIONS (6)
  - Rash [Recovering/Resolving]
  - Nail disorder [Recovered/Resolved]
  - Folliculitis [Recovered/Resolved]
  - Paronychia [Recovered/Resolved]
  - Eyelid disorder [Recovered/Resolved]
  - Leprosy [Recovered/Resolved]

NARRATIVE: CASE EVENT DATE: 20160824
